FAERS Safety Report 25115988 (Version 2)
Quarter: 2025Q2

REPORT INFORMATION
  Report Type: Spontaneous
  Country: US (occurrence: US)
  Receive Date: 20250325
  Receipt Date: 20250528
  Transmission Date: 20250717
  Serious: No
  Sender: BIOGEN
  Company Number: US-BIOGEN-2025BI01304235

PATIENT
  Age: 61 Year
  Sex: Male

DRUGS (1)
  1. VUMERITY [Suspect]
     Active Substance: DIROXIMEL FUMARATE
     Indication: Multiple sclerosis
     Dosage: START DATE ALSO PROVIDED AS 28-MAR-2024
     Route: 050
     Dates: start: 20240327

REACTIONS (2)
  - Multiple sclerosis [Unknown]
  - Joint space narrowing [Unknown]

NARRATIVE: CASE EVENT DATE: 20250301
